FAERS Safety Report 4469411-2 (Version None)
Quarter: 2004Q4

REPORT INFORMATION
  Report Type: 
  Country: None (occurrence: None)
  Receive Date: 20041008
  Receipt Date: 20040628
  Transmission Date: 20050328
  Serious: No
  Sender: FDA-Public Use
  Company Number: US-BRISTOL-MYERS SQUIBB COMPANY-12627600

PATIENT
  Age: 81 Year
  Sex: Male
  Weight: 61 kg

DRUGS (2)
  1. AVAPRO [Suspect]
     Indication: HYPERTENSION
     Route: 048
     Dates: start: 20040401
  2. ZOCOR [Concomitant]

REACTIONS (1)
  - RASH PRURITIC [None]
